FAERS Safety Report 10659863 (Version 3)
Quarter: 2015Q1

REPORT INFORMATION
  Report Type: Spontaneous
  Country: US (occurrence: US)
  Receive Date: 20141217
  Receipt Date: 20150212
  Transmission Date: 20150720
  Serious: No
  Sender: FDA-Public Use
  Company Number: US-GLAXOSMITHKLINE-A1079098A

PATIENT

DRUGS (11)
  1. VOTRIENT [Suspect]
     Active Substance: PAZOPANIB HYDROCHLORIDE
     Indication: SOFT TISSUE SARCOMA
     Dosage: 200 MG, QD
     Route: 048
     Dates: start: 20140603
  2. OXYCODONE [Concomitant]
     Active Substance: OXYCODONE
  3. SENNA [Concomitant]
     Active Substance: SENNA LEAF\SENNOSIDES\SENNOSIDES A AND B
  4. CALCIUM WITH VITAMIN D [Concomitant]
     Active Substance: CALCIUM\VITAMIN D
  5. OXYCONTIN [Concomitant]
     Active Substance: OXYCODONE HYDROCHLORIDE
  6. COLACE [Concomitant]
     Active Substance: DOCUSATE SODIUM
  7. LEXAPRO [Concomitant]
     Active Substance: ESCITALOPRAM OXALATE
  8. VITAMIN B12 INJECTION [Concomitant]
  9. PRO-AIR (ALBUTEROL SULFATE) [Concomitant]
  10. VOTRIENT [Suspect]
     Active Substance: PAZOPANIB HYDROCHLORIDE
     Indication: SARCOMA
     Dosage: 400 MG, QD
     Dates: start: 201407
  11. XGEVA [Concomitant]
     Active Substance: DENOSUMAB

REACTIONS (9)
  - Fatigue [Not Recovered/Not Resolved]
  - Obstructive airways disorder [Not Recovered/Not Resolved]
  - Headache [Not Recovered/Not Resolved]
  - Chronic obstructive pulmonary disease [Unknown]
  - Proctalgia [Unknown]
  - Pain [Unknown]
  - Flatulence [Unknown]
  - Platelet count decreased [Unknown]
  - Dyspnoea [Not Recovered/Not Resolved]

NARRATIVE: CASE EVENT DATE: 201408
